FAERS Safety Report 21718669 (Version 3)
Quarter: 2023Q1

REPORT INFORMATION
  Report Type: Spontaneous
  Country: US (occurrence: US)
  Receive Date: 20221213
  Receipt Date: 20230103
  Transmission Date: 20230417
  Serious: No
  Sender: FDA-Public Use
  Company Number: US-AMGEN-USASP2022213600

PATIENT
  Age: 52 Year
  Sex: Female
  Weight: 82.086 kg

DRUGS (2)
  1. AIMOVIG [Suspect]
     Active Substance: ERENUMAB-AOOE
     Indication: Migraine prophylaxis
     Dosage: 140 MILLIGRAM, Q3WK
     Route: 058
     Dates: start: 20221024
  2. AIMOVIG [Suspect]
     Active Substance: ERENUMAB-AOOE
     Dosage: 140 MILLIGRAM, Q3WK
     Route: 058

REACTIONS (5)
  - Off label use [Unknown]
  - Product storage error [Unknown]
  - Intercepted product administration error [Unknown]
  - Product communication issue [Unknown]
  - Inappropriate schedule of product administration [Unknown]

NARRATIVE: CASE EVENT DATE: 20221024
